FAERS Safety Report 4337370-9 (Version None)
Quarter: 2004Q2

REPORT INFORMATION
  Report Type: 
  Country: None (occurrence: None)
  Receive Date: 20040413
  Receipt Date: 20040407
  Transmission Date: 20050107
  Serious: Yes (Hospitalization)
  Sender: FDA-Public Use
  Company Number: 200411444FR

PATIENT
  Age: 45 Year
  Sex: Female
  Weight: 55 kg

DRUGS (2)
  1. RIFINAH [Suspect]
     Indication: TUBERCULOSIS PROPHYLAXIS
     Route: 048
     Dates: start: 20040214, end: 20040318
  2. ULTRA-LEVURE [Concomitant]
     Route: 048
     Dates: start: 20040308, end: 20040318

REACTIONS (3)
  - ANGIONEUROTIC OEDEMA [None]
  - CHEST PAIN [None]
  - DYSPNOEA [None]
